FAERS Safety Report 8397171 (Version 3)
Quarter: 2013Q2

REPORT INFORMATION
  Report Type: Spontaneous
  Country: CA (occurrence: CA)
  Receive Date: 20120209
  Receipt Date: 20130506
  Transmission Date: 20140414
  Serious: Yes (Hospitalization, Other)
  Sender: FDA-Public Use
  Company Number: CA-JNJFOC-20120203351

PATIENT
  Age: 57 Year
  Sex: Male
  Weight: 49.9 kg

DRUGS (19)
  1. REMICADE [Suspect]
     Indication: CROHN^S DISEASE
     Route: 042
     Dates: start: 20091027, end: 20111206
  2. IMURAN [Suspect]
     Indication: CROHN^S DISEASE
     Dosage: PREVIOUSLY REPORTED END DATE WAS 1-MAY-2012
     Route: 048
     Dates: start: 20040601, end: 20120228
  3. VALTREX [Concomitant]
     Indication: HERPES ZOSTER
     Route: 065
  4. NEXIUM [Concomitant]
     Indication: OSTEITIS DEFORMANS
     Route: 048
     Dates: start: 20040601
  5. VITAMIN B 12 [Concomitant]
     Indication: CROHN^S DISEASE
     Route: 065
     Dates: start: 20040601
  6. LOMOTIL [Concomitant]
     Indication: CROHN^S DISEASE
     Route: 048
     Dates: start: 20120601
  7. TEMAZEPAM [Concomitant]
     Indication: INSOMNIA
     Dosage: AT EVERY BED TIME IN THE EVENING (PM)
     Route: 048
     Dates: start: 20040601
  8. METOPROLOL [Concomitant]
     Indication: HYPERTENSION
     Route: 048
     Dates: start: 20040601
  9. ALENDRONATE [Concomitant]
     Indication: OSTEOPOROSIS
     Route: 048
     Dates: start: 20040601
  10. CALCIUM [Concomitant]
     Indication: OSTEOPOROSIS
     Route: 048
     Dates: start: 20040601
  11. VITAMIN D [Concomitant]
     Indication: OSTEOPOROSIS
     Route: 065
     Dates: start: 20120601
  12. LAMICTAL [Concomitant]
     Indication: EPILEPSY
     Route: 048
     Dates: start: 20040601
  13. FOLATE [Concomitant]
     Indication: CROHN^S DISEASE
     Route: 048
     Dates: start: 20040601
  14. CLONAZEPAM [Concomitant]
     Indication: ANXIETY
     Dosage: PRN (AS NESESSARY)
     Route: 048
     Dates: start: 20040601
  15. COVERSYL [Concomitant]
     Indication: HYPERTENSION
     Route: 048
     Dates: start: 20040601
  16. EZETROL [Concomitant]
     Indication: DYSLIPIDAEMIA
     Route: 048
     Dates: start: 20040601
  17. LIPITOR [Concomitant]
     Indication: DYSLIPIDAEMIA
     Route: 048
     Dates: start: 20040601
  18. ASA [Concomitant]
     Indication: CORONARY ARTERY DISEASE
     Route: 048
     Dates: start: 20040601
  19. TRAZODONE [Concomitant]
     Indication: DEPRESSION
     Route: 048
     Dates: start: 20040601

REACTIONS (5)
  - Intermittent claudication [Not Recovered/Not Resolved]
  - Emphysema [Unknown]
  - Pneumonia [Recovered/Resolved]
  - Platelet count decreased [Not Recovered/Not Resolved]
  - Herpes zoster [Recovered/Resolved]
